FAERS Safety Report 24772728 (Version 1)
Quarter: 2024Q4

REPORT INFORMATION
  Report Type: Spontaneous
  Country: QA (occurrence: None)
  Receive Date: 20241225
  Receipt Date: 20241225
  Transmission Date: 20250115
  Serious: Yes (Hospitalization)
  Sender: ENCUBE ETHICALS
  Company Number: QA-Encube-001513

PATIENT
  Age: 65 Year
  Sex: Female

DRUGS (1)
  1. DICLOFENAC SODIUM [Suspect]
     Active Substance: DICLOFENAC SODIUM
     Indication: Back pain
     Dosage: INJECTION
     Route: 030

REACTIONS (3)
  - Embolia cutis medicamentosa [Recovering/Resolving]
  - Product use in unapproved indication [Unknown]
  - Product use issue [Unknown]
